FAERS Safety Report 16012743 (Version 10)
Quarter: 2021Q4

REPORT INFORMATION
  Report Type: Report from Study
  Country: NL (occurrence: NL)
  Receive Date: 20190227
  Receipt Date: 20211126
  Transmission Date: 20220304
  Serious: Yes (Other)
  Sender: FDA-Public Use
  Company Number: NL-ABBVIE-18S-114-2480560-00

PATIENT
  Sex: Male
  Weight: 78 kg

DRUGS (6)
  1. CARBIDOPA\LEVODOPA [Suspect]
     Active Substance: CARBIDOPA\LEVODOPA
     Indication: Parkinson^s disease
     Dosage: MD: 12.0, CD: 3.3, ED: 2.0?REMAINS AT 16 HOURS
     Route: 050
     Dates: start: 20080404
  2. CARBIDOPA\LEVODOPA [Suspect]
     Active Substance: CARBIDOPA\LEVODOPA
     Dosage: MD: 12.0, CD: 3.5, ED: 2.5
     Route: 050
  3. CARBIDOPA\LEVODOPA [Suspect]
     Active Substance: CARBIDOPA\LEVODOPA
     Dosage: MD 11.7 ML?CD 3.5 ML?ED 2.5 ML
     Route: 050
     Dates: start: 20190219
  4. CARBIDOPA\LEVODOPA [Suspect]
     Active Substance: CARBIDOPA\LEVODOPA
     Dosage: MD: 11.7, CD: 4.0, ED: 2.5, REMAINS AT 16 HOURS.
     Route: 050
  5. CARBIDOPA\LEVODOPA [Suspect]
     Active Substance: CARBIDOPA\LEVODOPA
     Route: 050
  6. BENSERAZIDE HYDROCHLORIDE\LEVODOPA [Concomitant]
     Active Substance: BENSERAZIDE HYDROCHLORIDE\LEVODOPA
     Indication: Parkinson^s disease

REACTIONS (40)
  - Intestinal operation [Not Recovered/Not Resolved]
  - Balance disorder [Not Recovered/Not Resolved]
  - Sluggishness [Not Recovered/Not Resolved]
  - Salivary hypersecretion [Unknown]
  - Hypotension [Not Recovered/Not Resolved]
  - Muscle rigidity [Not Recovered/Not Resolved]
  - Urinary tract infection [Recovered/Resolved]
  - Tension [Recovered/Resolved]
  - Haematochezia [Not Recovered/Not Resolved]
  - Choking [Recovering/Resolving]
  - Memory impairment [Not Recovered/Not Resolved]
  - Cognitive disorder [Not Recovered/Not Resolved]
  - Restlessness [Not Recovered/Not Resolved]
  - Nocturia [Not Recovered/Not Resolved]
  - Stress [Not Recovered/Not Resolved]
  - General physical health deterioration [Not Recovered/Not Resolved]
  - Medical device discomfort [Unknown]
  - Tension [Unknown]
  - Fall [Not Recovered/Not Resolved]
  - Malaise [Not Recovered/Not Resolved]
  - Abnormal dreams [Recovered/Resolved]
  - Gait disturbance [Not Recovered/Not Resolved]
  - Fatigue [Recovering/Resolving]
  - Abnormal dreams [Not Recovered/Not Resolved]
  - Fatigue [Unknown]
  - Adverse drug reaction [Not Recovered/Not Resolved]
  - Orthostatic hypotension [Not Recovered/Not Resolved]
  - Agitation [Unknown]
  - Dizziness [Not Recovered/Not Resolved]
  - Dyskinesia [Not Recovered/Not Resolved]
  - Bradykinesia [Not Recovered/Not Resolved]
  - Somnolence [Not Recovered/Not Resolved]
  - Freezing phenomenon [Recovering/Resolving]
  - Dysphagia [Not Recovered/Not Resolved]
  - Therapeutic product effect delayed [Recovered/Resolved]
  - Impaired quality of life [Unknown]
  - Mobility decreased [Unknown]
  - Dysstasia [Not Recovered/Not Resolved]
  - Hallucination [Not Recovered/Not Resolved]
  - Metamorphopsia [Not Recovered/Not Resolved]

NARRATIVE: CASE EVENT DATE: 20200101
